FAERS Safety Report 10101536 (Version 1)
Quarter: 2014Q2

REPORT INFORMATION
  Report Type: Spontaneous
  Country: FR (occurrence: FR)
  Receive Date: 20140424
  Receipt Date: 20140424
  Transmission Date: 20141212
  Serious: Yes (Hospitalization)
  Sender: FDA-Public Use
  Company Number: FR-JNJFOC-20140414715

PATIENT
  Age: 65 Year
  Sex: Male

DRUGS (8)
  1. REMICADE [Suspect]
     Indication: CROHN^S DISEASE
     Route: 042
     Dates: start: 20131105
  2. REMICADE [Suspect]
     Indication: CROHN^S DISEASE
     Route: 042
     Dates: start: 20131218
  3. CORTANCYL [Suspect]
     Indication: CROHN^S DISEASE
     Route: 048
     Dates: start: 201310
  4. CORTANCYL [Suspect]
     Indication: CROHN^S DISEASE
     Route: 048
  5. INNOHEP [Concomitant]
     Route: 065
     Dates: start: 201311
  6. CACIT D3 [Concomitant]
     Route: 065
  7. PENTASA [Concomitant]
     Route: 065
  8. AVLOCARDYL [Concomitant]
     Route: 065

REACTIONS (3)
  - Pulmonary granuloma [Recovering/Resolving]
  - Pulmonary tuberculosis [Recovering/Resolving]
  - Pyrexia [Recovered/Resolved]
